FAERS Safety Report 4684484-X (Version None)
Quarter: 2005Q2

REPORT INFORMATION
  Report Type: 
  Country: None (occurrence: None)
  Receive Date: 20050606
  Receipt Date: 20050520
  Transmission Date: 20051028
  Serious: Yes (Hospitalization)
  Sender: FDA-Public Use
  Company Number: 2005077523

PATIENT
  Age: 24 Year
  Sex: Female
  Weight: 49.8957 kg

DRUGS (2)
  1. LISTERINE (MENTHOL, METHYL SALICYLATE, EUCALYPTOL, THYMOL) [Suspect]
     Indication: SUICIDE ATTEMPT
     Dosage: 1 BOTTLE ONCE, ORAL
     Route: 048
     Dates: start: 20050501, end: 20050501
  2. ANTIDEPRESSANTS (ANTIDEPRESSANTS) [Concomitant]

REACTIONS (4)
  - INTENTIONAL MISUSE [None]
  - LOSS OF CONSCIOUSNESS [None]
  - OVERDOSE [None]
  - SUICIDE ATTEMPT [None]
